FAERS Safety Report 15394666 (Version 2)
Quarter: 2018Q3

REPORT INFORMATION
  Report Type: Report from Study
  Country: GR (occurrence: GR)
  Receive Date: 20180918
  Receipt Date: 20180924
  Transmission Date: 20181010
  Serious: Yes (Hospitalization)
  Sender: FDA-Public Use
  Company Number: GR-ROCHE-2134684

PATIENT
  Age: 50 Year
  Sex: Female
  Weight: 68 kg

DRUGS (5)
  1. T4 [Concomitant]
     Active Substance: LEVOTHYROXINE
  2. BLINDED ATEZOLIZUMAB [Suspect]
     Active Substance: ATEZOLIZUMAB
     Indication: OVARIAN CANCER
     Dosage: DATE OF MOST RECENT DOSE OF BLINDED ATEZOLIZUMAB PRIOR TO ONSET OF SAE: 21/MAY/2018.?BLINDED ATEZOLI
     Route: 042
     Dates: start: 20180521
  3. CYMBALTA [Concomitant]
     Active Substance: DULOXETINE HYDROCHLORIDE
     Indication: DEPRESSION
  4. PACLITAXEL. [Suspect]
     Active Substance: PACLITAXEL
     Indication: OVARIAN CANCER
     Dosage: DATE OF MOST RECENT DOSE (320 MG) OF PACLITAXEL PRIOR TO SAE ONSET: 21/MAY/2018?PACLITAXEL 175 MILLI
     Route: 042
     Dates: start: 20180521
  5. CARBOPLATIN. [Suspect]
     Active Substance: CARBOPLATIN
     Indication: OVARIAN CANCER
     Dosage: DATE OF MOST RECENT DOSE (720 MG) OF CARBOPLATIN PRIOR TO SAE ONSET: 21/MAY/2018?CARBOPLATIN AT A DO
     Route: 042
     Dates: start: 20180521

REACTIONS (1)
  - Pleural effusion [Recovered/Resolved]

NARRATIVE: CASE EVENT DATE: 20180604
